FAERS Safety Report 25182158 (Version 1)
Quarter: 2025Q2

REPORT INFORMATION
  Report Type: Report from Study
  Country: US (occurrence: US)
  Receive Date: 20250410
  Receipt Date: 20250410
  Transmission Date: 20250717
  Serious: Yes (Other)
  Sender: ABBVIE
  Company Number: US-ABBVIE-6101601

PATIENT
  Age: 82 Year
  Sex: Male
  Weight: 126 kg

DRUGS (3)
  1. HUMIRA [Suspect]
     Active Substance: ADALIMUMAB
     Indication: Product used for unknown indication
     Route: 058
     Dates: start: 20220515
  2. HUMIRA [Suspect]
     Active Substance: ADALIMUMAB
     Route: 058
  3. HUMIRA [Suspect]
     Active Substance: ADALIMUMAB
     Dosage: HUMIRA CITRATE FREE PEN
     Route: 058
     Dates: start: 20220713

REACTIONS (8)
  - Bone deformity [Not Recovered/Not Resolved]
  - Pain [Recovering/Resolving]
  - Dental caries [Not Recovered/Not Resolved]
  - Condition aggravated [Not Recovered/Not Resolved]
  - Arthralgia [Not Recovered/Not Resolved]
  - Swelling [Recovering/Resolving]
  - Nerve compression [Unknown]
  - Inflammation [Unknown]

NARRATIVE: CASE EVENT DATE: 20241201
